FAERS Safety Report 4769953-6 (Version None)
Quarter: 2005Q3

REPORT INFORMATION
  Report Type: 
  Country: None (occurrence: None)
  Receive Date: 20050914
  Receipt Date: 20050909
  Transmission Date: 20060218
  Serious: Yes (Hospitalization)
  Sender: FDA-Public Use
  Company Number: TCI2005A03885

PATIENT
  Age: 80 Year
  Sex: Male

DRUGS (7)
  1. ACTOS [Suspect]
     Indication: DIABETES MELLITUS
     Dosage: 30 MG (30 MG, 1 D), PER ORAL
     Route: 048
     Dates: start: 20050601, end: 20050901
  2. ISOSORBIDE DINITRATE [Suspect]
  3. TICLOPIDINE HCL [Suspect]
     Dosage: PER ORAL
     Route: 048
  4. AMARYL [Suspect]
     Dosage: PER ORAL
     Route: 048
  5. LIPITOR [Suspect]
     Dosage: PER ORAL
     Route: 048
  6. ADALAT [Suspect]
     Dosage: PER ORAL
     Route: 048
  7. BUFFERIN [Suspect]
     Dosage: PER ORAL
     Route: 048

REACTIONS (3)
  - CARDIAC FAILURE [None]
  - DIALYSIS [None]
  - RENAL FAILURE [None]
